FAERS Safety Report 21047890 (Version 1)
Quarter: 2022Q3

REPORT INFORMATION
  Report Type: Spontaneous
  Country: US (occurrence: US)
  Receive Date: 20220706
  Receipt Date: 20220706
  Transmission Date: 20221027
  Serious: Yes (Other)
  Sender: FDA-Public Use
  Company Number: US-BAYER-2022A090125

PATIENT
  Age: 21 Year
  Sex: Female

DRUGS (1)
  1. ASPIRIN [Suspect]
     Active Substance: ASPIRIN
     Indication: Gynaecological disorder prophylaxis
     Dosage: UNK

REACTIONS (5)
  - Pre-eclampsia [None]
  - Premature delivery [None]
  - Off label use [None]
  - Contraindicated product administered [None]
  - Exposure during pregnancy [None]
